FAERS Safety Report 7226042-9 (Version None)
Quarter: 2011Q1

REPORT INFORMATION
  Report Type: 
  Country: None (occurrence: None)
  Receive Date: 20110113
  Receipt Date: 20110103
  Transmission Date: 20110831
  Serious: Yes (Other)
  Sender: FDA-Public Use
  Company Number: BR-GILEAD-2011-0034871

PATIENT
  Sex: Male
  Weight: 43 kg

DRUGS (12)
  1. LAMIVUDINE [Concomitant]
     Indication: HIV INFECTION
  2. PYRAZINAMIDE [Concomitant]
     Indication: TUBERCULOSIS
  3. ETHAMBUTOL HYDROCHLORIDE [Concomitant]
     Indication: TUBERCULOSIS
  4. ACYCLOVIR [Concomitant]
     Indication: HERPES ZOSTER
  5. EFAVIRENZ [Concomitant]
     Indication: HIV INFECTION
     Dates: end: 20110104
  6. AZITHROMYCIN [Concomitant]
     Indication: PROPHYLAXIS
  7. BACTRIM [Concomitant]
     Indication: PROPHYLAXIS
  8. VIREAD [Suspect]
     Indication: HIV INFECTION
  9. PARACETAMOL [Concomitant]
     Indication: HEADACHE
  10. RIFAMPIN [Concomitant]
     Indication: TUBERCULOSIS
     Dates: end: 20110104
  11. ISONIAZID [Concomitant]
     Indication: TUBERCULOSIS
     Dates: end: 20110104
  12. PREDNISONE [Concomitant]
     Indication: MENINGITIS

REACTIONS (3)
  - NAUSEA [None]
  - ASPARTATE AMINOTRANSFERASE INCREASED [None]
  - ALANINE AMINOTRANSFERASE INCREASED [None]
